FAERS Safety Report 7560356-8 (Version None)
Quarter: 2011Q2

REPORT INFORMATION
  Report Type: 
  Country: None (occurrence: None)
  Receive Date: 20110621
  Receipt Date: 20110609
  Transmission Date: 20111010
  Serious: Yes (Hospitalization)
  Sender: FDA-Public Use
  Company Number: ES-ELI_LILLY_AND_COMPANY-ES201105005819

PATIENT
  Sex: Female
  Weight: 125 kg

DRUGS (6)
  1. FORTEO [Suspect]
     Indication: OSTEOPOROSIS
     Dosage: 20 UG, QD
     Route: 058
     Dates: start: 20100304, end: 20110501
  2. MORFINA                            /00036302/ [Concomitant]
     Indication: ANALGESIC THERAPY
     Dosage: UNK, OTHER (3 DAYS)
     Route: 062
  3. NOLOTIL [Concomitant]
     Indication: PAIN
     Dosage: UNK, TID
     Route: 048
  4. LYRICA [Concomitant]
     Indication: PAIN
     Dosage: UNK, BID
     Route: 048
  5. METFORMIN HCL [Concomitant]
     Indication: DIABETES MELLITUS
     Dosage: UNK, TID
     Route: 048
  6. ALLOPURINOL [Concomitant]
     Indication: BLOOD URIC ACID
     Dosage: UNK, QD
     Route: 048

REACTIONS (2)
  - FRACTURE MALUNION [None]
  - PAIN [None]
